FAERS Safety Report 24989861 (Version 1)
Quarter: 2025Q1

REPORT INFORMATION
  Report Type: Report from Study
  Country: DO (occurrence: DO)
  Receive Date: 20250220
  Receipt Date: 20250220
  Transmission Date: 20250409
  Serious: Yes (Disabling)
  Sender: ALEXION PHARMACEUTICALS
  Company Number: DO-AstraZeneca-2022A227918

PATIENT

DRUGS (3)
  1. CRESTOR [Suspect]
     Active Substance: ROSUVASTATIN CALCIUM
     Indication: Drug therapy
     Dosage: 10 MILLIGRAM, QD
  2. CANDESARTAN CILEXETIL\HYDROCHLOROTHIAZIDE [Suspect]
     Active Substance: CANDESARTAN CILEXETIL\HYDROCHLOROTHIAZIDE
     Indication: Drug therapy
     Dosage: 32 MILLIGRAM, QD
  3. NEXIUM [Suspect]
     Active Substance: ESOMEPRAZOLE MAGNESIUM
     Indication: Drug therapy

REACTIONS (5)
  - Hypoacusis [Unknown]
  - Thyroid disorder [Unknown]
  - Dysstasia [Unknown]
  - Drug ineffective [Unknown]
  - Off label use [Unknown]
